FAERS Safety Report 11301548 (Version 1)
Quarter: 2015Q3

REPORT INFORMATION
  Report Type: Spontaneous
  Country: AU (occurrence: None)
  Receive Date: 20150722
  Receipt Date: 20150722
  Transmission Date: 20151125
  Serious: Yes (Other)
  Sender: FDA-Public Use
  Company Number: 2015HINLIT0576

PATIENT
  Age: 5 Month

DRUGS (3)
  1. ABACAVIR (ABACAVIR) [Concomitant]
     Active Substance: ABACAVIR
  2. LAMIVUDINE (LAMIVUDINE) UNKNOWN [Suspect]
     Active Substance: LAMIVUDINE
     Indication: HIV INFECTION
  3. NEVIRAPINE. [Suspect]
     Active Substance: NEVIRAPINE
     Indication: HIV INFECTION

REACTIONS (4)
  - Hepatitis [None]
  - Pyrexia [None]
  - Hypersensitivity [None]
  - Eosinophilia [None]
